FAERS Safety Report 7431026-1 (Version None)
Quarter: 2011Q2

REPORT INFORMATION
  Report Type: 
  Country: None (occurrence: None)
  Receive Date: 20110421
  Receipt Date: 20110414
  Transmission Date: 20111010
  Serious: Yes (Death)
  Sender: FDA-Public Use
  Company Number: ZA-B.I. PHARMACEUTICALS,INC./RIDGEFIELD-2011-DE-02493GD

PATIENT

DRUGS (5)
  1. ZIDOVUDINE [Suspect]
     Indication: HUMAN IMMUNODEFICIENCY VIRUS TRANSMISSION
  2. NEVIRAPINE [Suspect]
     Indication: PROPHYLAXIS
     Dosage: 0.6 ML OF ABOUT 2 MG/KG
     Route: 048
  3. ZIDOVUDINE [Suspect]
     Indication: PROPHYLAXIS
     Dosage: 4 MG/KG TWICE DAILY
  4. COTRIM [Suspect]
     Indication: PROPHYLAXIS
  5. NEVIRAPINE [Suspect]
     Indication: HUMAN IMMUNODEFICIENCY VIRUS TRANSMISSION

REACTIONS (1)
  - MALNUTRITION [None]
